FAERS Safety Report 23139903 (Version 1)
Quarter: 2023Q4

REPORT INFORMATION
  Report Type: Spontaneous
  Country: US (occurrence: None)
  Receive Date: 20231102
  Receipt Date: 20231102
  Transmission Date: 20240110
  Serious: Yes (Death)
  Sender: FDA-Public Use
  Company Number: None

PATIENT
  Sex: Female

DRUGS (2)
  1. VABYSMO [Suspect]
     Active Substance: FARICIMAB\FARICIMAB-SVOA
     Indication: Neovascular age-related macular degeneration
     Dosage: OTHER FREQUENCY : EVERY28DAYS ;?INJECT 6 MG INTRAVITREALLY INTO BOTH EYES EVERY 28 DAYS?
     Route: 042
     Dates: start: 20230421, end: 20231101
  2. EYLEA 2 MG/0.5ML SYR [Concomitant]

REACTIONS (1)
  - Death [None]
